FAERS Safety Report 25052674 (Version 1)
Quarter: 2025Q1

REPORT INFORMATION
  Report Type: Report from Study
  Country: CA (occurrence: CA)
  Receive Date: 20250307
  Receipt Date: 20250307
  Transmission Date: 20250408
  Serious: Yes (Death, Other)
  Sender: HLS THERAPEUTICS
  Company Number: CA-HLS-202500543

PATIENT
  Sex: Male

DRUGS (1)
  1. CLOZARIL [Suspect]
     Active Substance: CLOZAPINE
     Indication: Product used for unknown indication
     Route: 048
     Dates: start: 20230419

REACTIONS (9)
  - Anxiety disorder [Fatal]
  - Prostate cancer [Fatal]
  - Dementia [Fatal]
  - Depression [Fatal]
  - Sleep apnoea syndrome [Fatal]
  - Neurodegenerative disorder [Fatal]
  - Parkinson^s disease [Fatal]
  - Schizophrenia [Fatal]
  - Femoral neck fracture [Fatal]
